FAERS Safety Report 15562172 (Version 3)
Quarter: 2019Q2

REPORT INFORMATION
  Report Type: Spontaneous
  Country: AR (occurrence: AR)
  Receive Date: 20181029
  Receipt Date: 20190619
  Transmission Date: 20190711
  Serious: Yes (Hospitalization)
  Sender: FDA-Public Use
  Company Number: AR-SA-2018SA292981

PATIENT
  Age: 54 Year
  Sex: Female

DRUGS (1)
  1. INSULIN GLARGINE [Suspect]
     Active Substance: INSULIN GLARGINE
     Indication: TYPE 2 DIABETES MELLITUS

REACTIONS (12)
  - Hyperaesthesia [Recovered/Resolved]
  - Pain [Recovered/Resolved]
  - Low density lipoprotein increased [Recovered/Resolved]
  - Muscular weakness [Recovered/Resolved]
  - Glycosylated haemoglobin decreased [Recovered/Resolved]
  - Areflexia [Recovered/Resolved]
  - Gait disturbance [Recovered/Resolved]
  - Allodynia [Recovered/Resolved]
  - Hypercholesterolaemia [Recovered/Resolved]
  - Asthenia [Recovered/Resolved]
  - Blood triglycerides increased [Recovered/Resolved]
  - Chronic inflammatory demyelinating polyradiculoneuropathy [Recovered/Resolved]
